FAERS Safety Report 6404917-8 (Version None)
Quarter: 2009Q4

REPORT INFORMATION
  Report Type: 
  Country: None (occurrence: None)
  Receive Date: 20091019
  Receipt Date: 20091007
  Transmission Date: 20100525
  Serious: Yes (Death, Hospitalization)
  Sender: FDA-Public Use
  Company Number: GR-PFIZER INC-2009190256

PATIENT
  Age: 72 Year

DRUGS (9)
  1. MARAVIROC [Suspect]
     Indication: HIV INFECTION
     Dosage: 150 MG, 2X/DAY
     Route: 048
     Dates: start: 20080402, end: 20090226
  2. DIOVANE [Concomitant]
     Dosage: UNK
     Route: 048
     Dates: end: 20090225
  3. LASIX [Concomitant]
     Dosage: UNK
     Route: 048
     Dates: end: 20090225
  4. SOTALOL [Concomitant]
     Dosage: UNK
     Route: 048
     Dates: end: 20090225
  5. DIAMICRON [Concomitant]
     Dosage: UNK
     Route: 048
     Dates: end: 20090225
  6. ABACAVIR/LAMIVUDINE [Concomitant]
     Dosage: UNK
     Route: 048
     Dates: start: 20090112, end: 20090225
  7. NORVIR [Concomitant]
     Dosage: UNK
     Route: 048
     Dates: start: 20090112, end: 20090225
  8. PREZISTA [Concomitant]
     Dosage: UNK
     Route: 048
     Dates: start: 20090112, end: 20090225
  9. ISENTRESS [Concomitant]
     Dosage: UNK
     Route: 048
     Dates: start: 20090112, end: 20090225

REACTIONS (1)
  - MYOCARDIAL INFARCTION [None]
